FAERS Safety Report 22284668 (Version 1)
Quarter: 2023Q2

REPORT INFORMATION
  Report Type: Report from Study
  Country: US (occurrence: None)
  Receive Date: 20230504
  Receipt Date: 20230504
  Transmission Date: 20230721
  Serious: Yes (Death)
  Sender: FDA-Public Use
  Company Number: 2023A102616

PATIENT
  Age: 31930 Day
  Sex: Male

DRUGS (2)
  1. FARXIGA [Suspect]
     Active Substance: DAPAGLIFLOZIN PROPANEDIOL
     Route: 048
  2. BRILINTA [Concomitant]
     Active Substance: TICAGRELOR

REACTIONS (1)
  - Death [Fatal]

NARRATIVE: CASE EVENT DATE: 20230426
